FAERS Safety Report 6199765-0 (Version None)
Quarter: 2009Q2

REPORT INFORMATION
  Report Type: 
  Country: None (occurrence: None)
  Receive Date: 20090522
  Receipt Date: 20090513
  Transmission Date: 20091009
  Serious: Yes (Death, Other)
  Sender: FDA-Public Use
  Company Number: US-PFIZER INC-2009215740

PATIENT
  Sex: Male

DRUGS (9)
  1. ZOLOFT [Suspect]
     Indication: PANIC ATTACK
     Route: 048
     Dates: start: 20050619, end: 20060415
  2. ZOLOFT [Suspect]
     Indication: DYSTHYMIC DISORDER
  3. ZOLOFT [Suspect]
     Indication: GENERALISED ANXIETY DISORDER
  4. LIPITOR [Concomitant]
     Dates: start: 19990101
  5. VIAGRA [Concomitant]
     Indication: ERECTILE DYSFUNCTION
     Dates: start: 20050201
  6. VALIUM [Concomitant]
  7. CELEXA [Concomitant]
  8. PAXIL CR [Concomitant]
  9. WELLBUTRIN [Concomitant]

REACTIONS (4)
  - AGGRESSION [None]
  - COMPLETED SUICIDE [None]
  - GUN SHOT WOUND [None]
  - JEALOUS DELUSION [None]
